FAERS Safety Report 9311187 (Version 3)
Quarter: 2013Q2

REPORT INFORMATION
  Report Type: Spontaneous
  Country: US (occurrence: US)
  Receive Date: 20130528
  Receipt Date: 20130618
  Transmission Date: 20140414
  Serious: Yes (Death)
  Sender: FDA-Public Use
  Company Number: US-BAYER-2013-064523

PATIENT
  Age: 34 Year
  Sex: Female

DRUGS (1)
  1. MIRENA [Suspect]
     Indication: CONTRACEPTION
     Dosage: 20 MCG/24HR, CONT
     Route: 015
     Dates: start: 20071004, end: 20110801

REACTIONS (5)
  - Ectopic pregnancy with intrauterine device [Fatal]
  - Amenorrhoea [None]
  - Drug ineffective [None]
  - Ruptured ectopic pregnancy [Fatal]
  - Haemorrhage in pregnancy [Fatal]
